FAERS Safety Report 5882931-9 (Version None)
Quarter: 2008Q3

REPORT INFORMATION
  Report Type: 
  Country: None (occurrence: None)
  Receive Date: 20080913
  Receipt Date: 20080821
  Transmission Date: 20090109
  Serious: No
  Sender: FDA-Public Use
  Company Number: US-ABBOTT-08P-163-0472098-00

PATIENT
  Sex: Female
  Weight: 113.5 kg

DRUGS (10)
  1. HUMIRA [Suspect]
     Indication: RHEUMATOID ARTHRITIS
     Route: 058
     Dates: start: 20060601, end: 20080801
  2. CYCLOBENZAPRINE HCL [Concomitant]
     Indication: MUSCLE SPASMS
     Route: 048
  3. ZOLPIDEM TARTRATE [Concomitant]
     Indication: SLEEP DISORDER THERAPY
     Route: 048
  4. LEFLUNOMIDE [Concomitant]
     Indication: RHEUMATOID ARTHRITIS
     Route: 048
  5. PREGABALIN [Concomitant]
     Indication: RHEUMATOID ARTHRITIS
     Route: 048
  6. PANTOPRAZOLE [Concomitant]
     Indication: GASTROOESOPHAGEAL REFLUX DISEASE
     Route: 048
  7. CLONAZEPAM [Concomitant]
     Indication: FIBROMYALGIA
     Route: 048
  8. NAPROXEN [Concomitant]
     Indication: PAIN
     Route: 048
  9. DULOXETINE HYDROCHLORIDE [Concomitant]
     Indication: FIBROMYALGIA
     Route: 048
  10. ALLEGRA-D [Concomitant]
     Indication: HYPERSENSITIVITY
     Route: 048

REACTIONS (3)
  - GALLBLADDER DISORDER [None]
  - SINUSITIS [None]
  - UPPER RESPIRATORY TRACT INFECTION [None]
